FAERS Safety Report 10266334 (Version 2)
Quarter: 2015Q3

REPORT INFORMATION
  Report Type: Spontaneous
  Country: US (occurrence: US)
  Receive Date: 20140627
  Receipt Date: 20150817
  Transmission Date: 20151125
  Serious: No
  Sender: FDA-Public Use
  Company Number: US-GILEAD-2014-0106849

PATIENT
  Age: 71 Year
  Sex: Female

DRUGS (34)
  1. LEVSIN [Concomitant]
     Active Substance: HYOSCYAMINE SULFATE
  2. CYANOCOBALAMIN. [Concomitant]
     Active Substance: CYANOCOBALAMIN
  3. ALBUTEROL SULFATE. [Concomitant]
     Active Substance: ALBUTEROL SULFATE
  4. PHENERGAN [Concomitant]
     Active Substance: PROMETHAZINE HYDROCHLORIDE
  5. MIRALAX [Concomitant]
     Active Substance: POLYETHYLENE GLYCOL 3350
  6. DICYCLOMINE                        /00068602/ [Concomitant]
  7. ZOCOR [Concomitant]
     Active Substance: SIMVASTATIN
  8. OXYBUTYNIN [Concomitant]
     Active Substance: OXYBUTYNIN
  9. MILK OF MAGNESIA [Concomitant]
     Active Substance: MAGNESIUM HYDROXIDE
  10. LOPERAMIDE [Concomitant]
     Active Substance: LOPERAMIDE
  11. ONDANSETRON [Concomitant]
     Active Substance: ONDANSETRON
  12. CARAFATE [Concomitant]
     Active Substance: SUCRALFATE
  13. MULTIVITAMIN                       /07504101/ [Concomitant]
     Active Substance: VITAMINS
  14. VITAMIN D [Concomitant]
     Active Substance: CHOLECALCIFEROL
  15. TUSSICAPS [Concomitant]
     Active Substance: CHLORPHENIRAMINE\CHLORPHENIRAMINE MALEATE\HYDROCODONE\HYDROCODONE BITARTRATE
  16. COMBIVENT [Concomitant]
     Active Substance: ALBUTEROL SULFATE\IPRATROPIUM BROMIDE
  17. VITAMIN B12 [Concomitant]
     Active Substance: CYANOCOBALAMIN
  18. CALCIUM CARBONATE. [Concomitant]
     Active Substance: CALCIUM CARBONATE
  19. ADVAIR HFA [Concomitant]
     Active Substance: FLUTICASONE PROPIONATE\SALMETEROL XINAFOATE
  20. OXYCONTIN [Concomitant]
     Active Substance: OXYCODONE HYDROCHLORIDE
  21. XANAX [Concomitant]
     Active Substance: ALPRAZOLAM
  22. BISACODYL. [Concomitant]
     Active Substance: BISACODYL
  23. HYDROXYZINE [Concomitant]
     Active Substance: HYDROXYZINE\HYDROXYZINE HYDROCHLORIDE
  24. PERCOCET [Concomitant]
     Active Substance: ACETAMINOPHEN\OXYCODONE HYDROCHLORIDE
  25. ABILIFY [Concomitant]
     Active Substance: ARIPIPRAZOLE
  26. COZAAR [Concomitant]
     Active Substance: LOSARTAN POTASSIUM
  27. DEXILANT [Concomitant]
     Active Substance: DEXLANSOPRAZOLE
  28. PENTASA [Concomitant]
     Active Substance: MESALAMINE
  29. METFORMIN [Concomitant]
     Active Substance: METFORMIN HYDROCHLORIDE
  30. LETAIRIS [Suspect]
     Active Substance: AMBRISENTAN
     Indication: PULMONARY HYPERTENSION
     Dosage: 5 MG, QD
     Route: 065
     Dates: start: 20140429
  31. SENNA                              /00571901/ [Concomitant]
  32. LEXAPRO [Concomitant]
     Active Substance: ESCITALOPRAM OXALATE
  33. COLACE [Concomitant]
     Active Substance: DOCUSATE SODIUM
  34. DIFLUCAN [Concomitant]
     Active Substance: FLUCONAZOLE

REACTIONS (1)
  - Oedema peripheral [Not Recovered/Not Resolved]

NARRATIVE: CASE EVENT DATE: 20140617
